FAERS Safety Report 17163128 (Version 2)
Quarter: 2019Q4

REPORT INFORMATION
  Report Type: Spontaneous
  Country: US (occurrence: US)
  Receive Date: 20191217
  Receipt Date: 20191217
  Transmission Date: 20200122
  Serious: Yes (Hospitalization)
  Sender: FDA-Public Use
  Company Number: US-CELGENEUS-USA-20191204259

PATIENT
  Age: 66 Year
  Sex: Female
  Weight: 83.91 kg

DRUGS (4)
  1. OTEZLA [Suspect]
     Active Substance: APREMILAST
     Indication: PRODUCT USED FOR UNKNOWN INDICATION
     Route: 048
  2. XELJANZ XR [Suspect]
     Active Substance: TOFACITINIB CITRATE
     Indication: PSORIATIC ARTHROPATHY
     Dosage: 11 MILLIGRAM
     Route: 048
     Dates: start: 201906, end: 201910
  3. HUMIRA [Suspect]
     Active Substance: ADALIMUMAB
     Indication: PSORIATIC ARTHROPATHY
     Dosage: 40 MILLIGRAM
     Route: 058
     Dates: start: 2011
  4. PRAVASTATIN. [Concomitant]
     Active Substance: PRAVASTATIN
     Indication: PRODUCT USED FOR UNKNOWN INDICATION
     Dosage: 20 MILLIGRAM
     Route: 065

REACTIONS (20)
  - Immune system disorder [Not Recovered/Not Resolved]
  - Ear pruritus [Unknown]
  - Chest pain [Unknown]
  - Glucose tolerance impaired [Unknown]
  - Sinus congestion [Unknown]
  - Bronchitis [Unknown]
  - Pneumonia [Unknown]
  - Tooth loss [Recovering/Resolving]
  - Abdominal distension [Recovered/Resolved]
  - Gingival abscess [Recovering/Resolving]
  - Oral candidiasis [Recovering/Resolving]
  - Haemoglobin decreased [Not Recovered/Not Resolved]
  - Adverse drug reaction [Not Recovered/Not Resolved]
  - Upper respiratory tract infection [Unknown]
  - Chest discomfort [Unknown]
  - Blood triglycerides increased [Unknown]
  - Hypersensitivity [Unknown]
  - Liver function test abnormal [Unknown]
  - Ear pain [Unknown]
  - Blood cholesterol increased [Recovering/Resolving]

NARRATIVE: CASE EVENT DATE: 2019
